FAERS Safety Report 7276261-0 (Version None)
Quarter: 2011Q1

REPORT INFORMATION
  Report Type: 
  Country: None (occurrence: None)
  Receive Date: 20110204
  Receipt Date: 20110126
  Transmission Date: 20110831
  Serious: Yes (Hospitalization)
  Sender: FDA-Public Use
  Company Number: US-ASTRAZENECA-2011SE04734

PATIENT
  Age: 38 Year
  Sex: Female

DRUGS (2)
  1. NEXIUM [Suspect]
     Route: 048
  2. PRILOSEC [Suspect]
     Route: 048

REACTIONS (6)
  - DYSPEPSIA [None]
  - DRUG INEFFECTIVE [None]
  - HOSPITALISATION [None]
  - OESOPHAGEAL PAIN [None]
  - VOMITING [None]
  - DRUG DOSE OMISSION [None]
